FAERS Safety Report 21379591 (Version 1)
Quarter: 2022Q3

REPORT INFORMATION
  Report Type: Spontaneous
  Country: DE (occurrence: DE)
  Receive Date: 20220927
  Receipt Date: 20220927
  Transmission Date: 20221027
  Serious: Yes (Hospitalization, Other)
  Sender: FDA-Public Use
  Company Number: DE-ADRED-07778-01

PATIENT
  Age: 73 Year
  Sex: Male

DRUGS (12)
  1. FEBUXOSTAT [Suspect]
     Active Substance: FEBUXOSTAT
     Indication: Product used for unknown indication
     Dosage: 80 MILLIGRAM, ONCE A DAY
     Route: 048
  2. IRINOTECAN [Suspect]
     Active Substance: IRINOTECAN
     Indication: Product used for unknown indication
     Dosage: NACH SCHEMA
     Route: 042
  3. FLUOROURACIL [Suspect]
     Active Substance: FLUOROURACIL
     Indication: Product used for unknown indication
     Dosage: ACCORDING TO SCHEME
     Route: 042
  4. LEUCOVORIN CALCIUM [Concomitant]
     Active Substance: LEUCOVORIN CALCIUM
     Indication: Product used for unknown indication
     Dosage: NACH SCHEMA
     Route: 042
  5. Fortimel Yoghurt Style Raspberry [Concomitant]
     Indication: Product used for unknown indication
     Dosage: 1-1-1-0, TRINKNAHRUNG
     Route: 048
  6. DEXAMETHASONE [Concomitant]
     Active Substance: DEXAMETHASONE
     Indication: Product used for unknown indication
     Dosage: ACCORDING TO SCHEME
     Route: 042
  7. GRANISETRON [Concomitant]
     Active Substance: GRANISETRON
     Indication: Product used for unknown indication
     Dosage: ACCORDING TO SCHEME
     Route: 042
  8. LOPERAMIDE [Concomitant]
     Active Substance: LOPERAMIDE
     Indication: Product used for unknown indication
     Dosage: 2 MILLIGRAM
     Route: 048
  9. LIPEGFILGRASTIM [Concomitant]
     Active Substance: LIPEGFILGRASTIM
     Indication: Product used for unknown indication
     Dosage: 6 MILLIGRAM, SINGLE DOSE
     Route: 065
  10. MAGNESIUM [Concomitant]
     Active Substance: MAGNESIUM
     Indication: Product used for unknown indication
     Dosage: NACH SCHEMA
     Route: 042
  11. OXALIPLATIN [Suspect]
     Active Substance: OXALIPLATIN
     Indication: Product used for unknown indication
     Dosage: NACH SCHEMA
     Route: 042
  12. TINZAPARIN [Suspect]
     Active Substance: TINZAPARIN
     Indication: Product used for unknown indication
     Dosage: 14000 IE/0.7ML, 0-0-1-0, PRE-FILLED SYRINGES
     Route: 058

REACTIONS (2)
  - Pancytopenia [Unknown]
  - Anaemia [Unknown]
